FAERS Safety Report 4677052-7 (Version None)
Quarter: 2005Q2

REPORT INFORMATION
  Report Type: 
  Country: None (occurrence: None)
  Receive Date: 20050525
  Receipt Date: 20050210
  Transmission Date: 20051028
  Serious: No
  Sender: FDA-Public Use
  Company Number: SU-2005-003142

PATIENT

DRUGS (1)
  1. BENICAR [Suspect]
     Dosage: 40 MG  PO
     Route: 048
     Dates: start: 20040101

REACTIONS (2)
  - GINGIVAL SWELLING [None]
  - VERTIGO [None]
